FAERS Safety Report 11056451 (Version 3)
Quarter: 2015Q3

REPORT INFORMATION
  Report Type: Spontaneous
  Country: US (occurrence: US)
  Receive Date: 20150422
  Receipt Date: 20150812
  Transmission Date: 20151125
  Serious: No
  Sender: FDA-Public Use
  Company Number: US-JNJFOC-20150321368

PATIENT
  Age: 61 Year
  Sex: Female

DRUGS (1)
  1. INVOKAMET [Suspect]
     Active Substance: CANAGLIFLOZIN\METFORMIN HYDROCHLORIDE
     Indication: TYPE 2 DIABETES MELLITUS
     Dosage: 150MG/500MG/ -/ 150MG/500MG/ TWICE DAILY
     Route: 048
     Dates: start: 20150324

REACTIONS (3)
  - Product friable [Unknown]
  - Underdose [Unknown]
  - Incorrect product storage [Recovered/Resolved]

NARRATIVE: CASE EVENT DATE: 201503
